FAERS Safety Report 14732826 (Version 3)
Quarter: 2019Q1

REPORT INFORMATION
  Report Type: Spontaneous
  Country: US (occurrence: US)
  Receive Date: 20180409
  Receipt Date: 20190227
  Transmission Date: 20190417
  Serious: No
  Sender: FDA-Public Use
  Company Number: US-PFIZER INC-2017495170

PATIENT
  Age: 69 Year
  Sex: Female

DRUGS (1)
  1. LYRICA [Suspect]
     Active Substance: PREGABALIN
     Indication: PAIN IN EXTREMITY
     Dosage: ONLY TAKING 2 PER DAY

REACTIONS (3)
  - Intentional product use issue [Unknown]
  - Nerve injury [Unknown]
  - Pain in extremity [Recovering/Resolving]
